FAERS Safety Report 20590052 (Version 1)
Quarter: 2022Q1

REPORT INFORMATION
  Report Type: Spontaneous
  Country: US (occurrence: None)
  Receive Date: 20220311
  Receipt Date: 20220311
  Transmission Date: 20220423
  Serious: No
  Sender: FDA-Public Use
  Company Number: None

PATIENT
  Age: 26 Year
  Sex: Female
  Weight: 101.25 kg

DRUGS (1)
  1. EUCRISA [Suspect]
     Active Substance: CRISABOROLE
     Indication: Eczema
     Dosage: OTHER QUANTITY : 1 TUBE;?FREQUENCY : TWICE A DAY;?
     Route: 061
     Dates: start: 20220311, end: 20220311

REACTIONS (1)
  - Eyelid irritation [None]

NARRATIVE: CASE EVENT DATE: 20220311
